FAERS Safety Report 7214995-4 (Version None)
Quarter: 2011Q1

REPORT INFORMATION
  Report Type: 
  Country: None (occurrence: None)
  Receive Date: 20110107
  Receipt Date: 20100630
  Transmission Date: 20110831
  Serious: No
  Sender: FDA-Public Use
  Company Number: A0867919A

PATIENT
  Age: 61 Year
  Sex: Female

DRUGS (6)
  1. PREMARIN [Concomitant]
  2. CALCIUM [Concomitant]
  3. VITAMIN D [Concomitant]
  4. STATINS [Concomitant]
  5. GELATIN CAPSULES [Concomitant]
  6. LOVAZA [Suspect]
     Dosage: 2CAP TWICE PER DAY
     Route: 048
     Dates: start: 20100601, end: 20100625

REACTIONS (2)
  - RASH [None]
  - SKIN ULCER [None]
